FAERS Safety Report 4572278-5 (Version None)
Quarter: 2005Q1

REPORT INFORMATION
  Report Type: 
  Country: None (occurrence: None)
  Receive Date: 20050203
  Receipt Date: 20050119
  Transmission Date: 20050727
  Serious: No
  Sender: FDA-Public Use
  Company Number: 2004AP06376

PATIENT
  Age: 67 Year
  Sex: Male

DRUGS (2)
  1. IRESSA [Suspect]
     Indication: LARGE CELL CARCINOMA OF THE RESPIRATORY TRACT STAGE UNSPECIFIED
     Dosage: 250 MG DAILY PO
     Route: 048
     Dates: start: 20040510
  2. PRIMPERAN INJ [Concomitant]

REACTIONS (1)
  - HYPOGLYCAEMIA [None]
